FAERS Safety Report 19756727 (Version 3)
Quarter: 2022Q2

REPORT INFORMATION
  Report Type: Spontaneous
  Country: AU (occurrence: AU)
  Receive Date: 20210828
  Receipt Date: 20220404
  Transmission Date: 20220721
  Serious: Yes (Other)
  Sender: FDA-Public Use
  Company Number: AU-SA-SAC20210720000143

PATIENT
  Age: 86 Year
  Sex: Male

DRUGS (2)
  1. LIBTAYO [Suspect]
     Active Substance: CEMIPLIMAB-RWLC
     Indication: Skin squamous cell carcinoma metastatic
     Dosage: 350 MG, Q3W
     Route: 042
     Dates: start: 20210624, end: 20210624
  2. LIBTAYO [Suspect]
     Active Substance: CEMIPLIMAB-RWLC
     Dosage: 350 MG, Q3W
     Route: 042
     Dates: start: 20210805, end: 20210805

REACTIONS (5)
  - Pulmonary fibrosis [Recovering/Resolving]
  - Radicular pain [Unknown]
  - Condition aggravated [Recovering/Resolving]
  - Pain in extremity [Unknown]
  - Dyspnoea [Recovering/Resolving]

NARRATIVE: CASE EVENT DATE: 20210805
